FAERS Safety Report 5742061-3 (Version None)
Quarter: 2008Q2

REPORT INFORMATION
  Report Type: 
  Country: None (occurrence: None)
  Receive Date: 20080519
  Receipt Date: 20080505
  Transmission Date: 20081010
  Serious: Yes (Disabling)
  Sender: FDA-Public Use
  Company Number: US-MERCK-0805USA00676

PATIENT
  Age: 8 Year
  Sex: Female
  Weight: 39 kg

DRUGS (2)
  1. SINGULAIR [Suspect]
     Route: 048
     Dates: start: 20070101, end: 20080201
  2. SINGULAIR [Suspect]
     Route: 048
     Dates: start: 20080101, end: 20080301

REACTIONS (2)
  - DEPRESSION [None]
  - MOOD ALTERED [None]
